FAERS Safety Report 20090353 (Version 1)
Quarter: 2021Q4

REPORT INFORMATION
  Report Type: Spontaneous
  Country: US (occurrence: None)
  Receive Date: 20211118
  Receipt Date: 20211118
  Transmission Date: 20220303
  Serious: Yes (Hospitalization)
  Sender: FDA-Public Use
  Company Number: None

PATIENT
  Sex: Male

DRUGS (4)
  1. LYRICA CR [Suspect]
     Active Substance: PREGABALIN
     Indication: Pain
  2. LIDOCAINE PATCHES 5 % [Concomitant]
  3. CELECOXIB [Concomitant]
     Active Substance: CELECOXIB
  4. ONDANSETRON [Concomitant]
     Active Substance: ONDANSETRON

REACTIONS (3)
  - Visual impairment [None]
  - Blindness unilateral [None]
  - Inadequate analgesia [None]

NARRATIVE: CASE EVENT DATE: 20200801
